FAERS Safety Report 12219089 (Version 3)
Quarter: 2016Q2

REPORT INFORMATION
  Report Type: Spontaneous
  Country: JP (occurrence: JP)
  Receive Date: 20160329
  Receipt Date: 20160523
  Transmission Date: 20160815
  Serious: Yes (Hospitalization)
  Sender: FDA-Public Use
  Company Number: JP-JNJFOC-20160326485

PATIENT
  Age: 76 Year
  Sex: Female
  Weight: 50 kg

DRUGS (12)
  1. MICARDIS [Concomitant]
     Active Substance: TELMISARTAN
     Route: 048
     Dates: start: 20100220
  2. ALPRAZOLAM. [Concomitant]
     Active Substance: ALPRAZOLAM
     Route: 048
     Dates: start: 20040608
  3. NORVASC [Concomitant]
     Active Substance: AMLODIPINE BESYLATE
     Route: 048
     Dates: start: 20150120
  4. FORTEO [Concomitant]
     Active Substance: TERIPARATIDE
     Route: 058
  5. XARELTO [Suspect]
     Active Substance: RIVAROXABAN
     Indication: ATRIAL FIBRILLATION
     Route: 048
     Dates: start: 20160304, end: 20160308
  6. XARELTO [Suspect]
     Active Substance: RIVAROXABAN
     Indication: ATRIAL FIBRILLATION
     Route: 048
     Dates: start: 20150812, end: 20160212
  7. XARELTO [Suspect]
     Active Substance: RIVAROXABAN
     Indication: CEREBROVASCULAR ACCIDENT PROPHYLAXIS
     Route: 048
     Dates: start: 20160304, end: 20160308
  8. XARELTO [Suspect]
     Active Substance: RIVAROXABAN
     Indication: CEREBROVASCULAR ACCIDENT PROPHYLAXIS
     Route: 048
     Dates: start: 20150812, end: 20160212
  9. POLY-HISTINE-D [Concomitant]
     Route: 048
  10. ROCALTROL [Concomitant]
     Active Substance: CALCITRIOL
     Route: 048
     Dates: start: 20070526
  11. BONALON [Concomitant]
     Active Substance: ALENDRONATE SODIUM
     Route: 048
     Dates: start: 20070526, end: 20151218
  12. GASTROM [Concomitant]
     Active Substance: ECABET
     Route: 048
     Dates: start: 20041009

REACTIONS (2)
  - Spinal compression fracture [Recovered/Resolved]
  - Haematuria [Recovered/Resolved]

NARRATIVE: CASE EVENT DATE: 20151226
